FAERS Safety Report 13025020 (Version 2)
Quarter: 2016Q4

REPORT INFORMATION
  Report Type: Spontaneous
  Country: US (occurrence: US)
  Receive Date: 20161213
  Receipt Date: 20161228
  Transmission Date: 20170207
  Serious: No
  Sender: FDA-Public Use
  Company Number: PHEH2016US032304

PATIENT
  Sex: Female

DRUGS (3)
  1. MEKINIST [Suspect]
     Active Substance: TRAMETINIB DIMETHYL SULFOXIDE
     Indication: BREAST CANCER
     Dosage: UNK
     Route: 065
     Dates: start: 20161206
  2. AVASTIN [Suspect]
     Active Substance: BEVACIZUMAB
     Indication: PRODUCT USED FOR UNKNOWN INDICATION
     Route: 065
  3. DOXIL [Suspect]
     Active Substance: DOXORUBICIN HYDROCHLORIDE
     Indication: PRODUCT USED FOR UNKNOWN INDICATION
     Route: 065

REACTIONS (10)
  - Fatigue [Unknown]
  - Dizziness [Recovered/Resolved]
  - Dry eye [Unknown]
  - Dry skin [Unknown]
  - Dry mouth [Unknown]
  - Lip dry [Unknown]
  - Dizziness [Unknown]
  - Hypotension [Unknown]
  - Nasal dryness [Unknown]
  - Dehydration [Unknown]

NARRATIVE: CASE EVENT DATE: 20161206
